FAERS Safety Report 7557934-9 (Version None)
Quarter: 2011Q2

REPORT INFORMATION
  Report Type: 
  Country: None (occurrence: None)
  Receive Date: 20110620
  Receipt Date: 20110609
  Transmission Date: 20111010
  Serious: Yes (Hospitalization)
  Sender: FDA-Public Use
  Company Number: B0725207A

PATIENT
  Sex: Female

DRUGS (5)
  1. ARIXTRA [Suspect]
     Indication: THROMBOSIS PROPHYLAXIS
     Dosage: 2.5MG PER DAY
     Route: 058
     Dates: start: 20110424, end: 20110502
  2. PREVISCAN [Suspect]
     Dosage: 20MG PER DAY
     Route: 048
     Dates: end: 20110502
  3. CAPTOPRIL AND HYDROCHLOROTHIAZIDE [Concomitant]
     Dosage: 1TAB PER DAY
     Route: 048
  4. DIGOXIN [Concomitant]
     Dosage: .125MG PER DAY
     Route: 048
  5. PROPRANOLOL [Concomitant]
     Dosage: 160MG PER DAY
     Route: 048

REACTIONS (6)
  - RENAL FAILURE ACUTE [None]
  - ABDOMINAL PAIN [None]
  - OLIGURIA [None]
  - ABDOMINAL WALL HAEMATOMA [None]
  - ANAEMIA [None]
  - ECCHYMOSIS [None]
